FAERS Safety Report 19968929 (Version 3)
Quarter: 2022Q1

REPORT INFORMATION
  Report Type: Report from Study
  Country: US (occurrence: US)
  Receive Date: 20211019
  Receipt Date: 20220107
  Transmission Date: 20220424
  Serious: No
  Sender: FDA-Public Use
  Company Number: NVSC2021US238134

PATIENT
  Age: 50 Year
  Sex: Female

DRUGS (1)
  1. KESIMPTA [Suspect]
     Active Substance: OFATUMUMAB
     Indication: Product used for unknown indication
     Dosage: UNK
     Route: 065
     Dates: start: 20211013

REACTIONS (5)
  - Pain [Unknown]
  - Sleep disorder [Unknown]
  - Throat irritation [Unknown]
  - Cough [Unknown]
  - Chills [Unknown]

NARRATIVE: CASE EVENT DATE: 20211013
